FAERS Safety Report 24639389 (Version 2)
Quarter: 2024Q4

REPORT INFORMATION
  Report Type: Spontaneous
  Country: US (occurrence: US)
  Receive Date: 20241119
  Receipt Date: 20241218
  Transmission Date: 20250115
  Serious: Yes (Other)
  Sender: TEVA
  Company Number: US-TEVA-VS-3265577

PATIENT
  Age: 50 Year
  Sex: Male

DRUGS (1)
  1. CISPLATIN [Suspect]
     Active Substance: CISPLATIN
     Indication: Squamous cell carcinoma of skin
     Route: 065

REACTIONS (5)
  - Drug ineffective [Unknown]
  - Hyperactive pharyngeal reflex [Unknown]
  - Vomiting [Unknown]
  - Dysphagia [Unknown]
  - Retching [Unknown]
